FAERS Safety Report 4762147-X (Version None)
Quarter: 2005Q3

REPORT INFORMATION
  Report Type: 
  Country: None (occurrence: None)
  Receive Date: 20050906
  Receipt Date: 20050906
  Transmission Date: 20060218
  Serious: Yes (Other)
  Sender: FDA-Public Use
  Company Number: None

PATIENT
  Age: 48 Year
  Sex: Male
  Weight: 79.3795 kg

DRUGS (1)
  1. ZICAM [Suspect]
     Dosage: ONE SPRAY ONE ENDOSINUSI
     Route: 006

REACTIONS (3)
  - AGEUSIA [None]
  - ANOSMIA [None]
  - RHINALGIA [None]
